FAERS Safety Report 13247900 (Version 1)
Quarter: 2017Q1

REPORT INFORMATION
  Report Type: Spontaneous
  Country: US (occurrence: US)
  Receive Date: 20170217
  Receipt Date: 20170217
  Transmission Date: 20170428
  Serious: Yes (Hospitalization)
  Sender: FDA-Public Use
  Company Number: US-SA-2017SA024220

PATIENT
  Age: 71 Year
  Sex: Female

DRUGS (9)
  1. INSULIN HUMAN REGULAR [Suspect]
     Active Substance: INSULIN HUMAN
     Indication: TYPE 2 DIABETES MELLITUS
     Route: 065
  2. INSULIN GLARGINE [Suspect]
     Active Substance: INSULIN GLARGINE
     Indication: TYPE 2 DIABETES MELLITUS
     Dosage: DOSE:30 UNIT(S)
     Route: 065
  3. INSULIN ASPART [Suspect]
     Active Substance: INSULIN ASPART
     Indication: TYPE 2 DIABETES MELLITUS
     Route: 065
  4. INSULIN ASPART [Suspect]
     Active Substance: INSULIN ASPART
     Indication: HYPEROSMOLAR HYPERGLYCAEMIC STATE
     Route: 065
  5. INSULIN HUMAN REGULAR [Suspect]
     Active Substance: INSULIN HUMAN
     Indication: HYPEROSMOLAR HYPERGLYCAEMIC STATE
     Dosage: ADMINISTERED AS DRIP
     Route: 065
  6. INSULIN HUMAN REGULAR [Suspect]
     Active Substance: INSULIN HUMAN
     Indication: HYPEROSMOLAR HYPERGLYCAEMIC STATE
     Route: 065
  7. NPH INSULIN [Suspect]
     Active Substance: INSULIN BEEF
     Indication: HYPEROSMOLAR HYPERGLYCAEMIC STATE
     Dosage: ADMINISTERED AS BOLUS
     Route: 065
  8. NPH INSULIN [Suspect]
     Active Substance: INSULIN BEEF
     Indication: TYPE 2 DIABETES MELLITUS
     Dosage: ADMINISTERED AS BOLUS
     Route: 065
  9. INSULIN HUMAN REGULAR [Suspect]
     Active Substance: INSULIN HUMAN
     Indication: TYPE 2 DIABETES MELLITUS
     Dosage: ADMINISTERED AS DRIP
     Route: 065

REACTIONS (2)
  - Hyperosmolar hyperglycaemic state [Recovered/Resolved]
  - Insulin resistance [Recovered/Resolved]
